FAERS Safety Report 6661338-0 (Version None)
Quarter: 2010Q1

REPORT INFORMATION
  Report Type: 
  Country: None (occurrence: None)
  Receive Date: 20100331
  Receipt Date: 20100322
  Transmission Date: 20100710
  Serious: Yes (Hospitalization)
  Sender: FDA-Public Use
  Company Number: PHHY2010JO17337

PATIENT
  Age: 47 Year
  Sex: Female

DRUGS (3)
  1. ZOLEDRONIC ACID [Suspect]
     Indication: OSTEOPOROSIS
     Dosage: 5 MG, UNK
     Route: 042
     Dates: start: 20100317
  2. VITAMIN D [Concomitant]
     Dosage: WEEKLY
     Route: 042
  3. CALCIUM CARBONATE [Concomitant]
     Dosage: 500 UNK, BID

REACTIONS (9)
  - ARTHRALGIA [None]
  - DIZZINESS [None]
  - HAEMATOCRIT DECREASED [None]
  - HAEMATURIA [None]
  - LIVEDO RETICULARIS [None]
  - LOSS OF CONSCIOUSNESS [None]
  - MYALGIA [None]
  - PYREXIA [None]
  - VENOUS INSUFFICIENCY [None]
